FAERS Safety Report 5174190-X (Version None)
Quarter: 2006Q4

REPORT INFORMATION
  Report Type: 
  Country: None (occurrence: None)
  Receive Date: 20061214
  Receipt Date: 20061130
  Transmission Date: 20070319
  Serious: Yes (Hospitalization, Other)
  Sender: FDA-Public Use
  Company Number: US-ELI_LILLY_AND_COMPANY-US200612000138

PATIENT
  Age: 56 Year
  Sex: Female

DRUGS (8)
  1. FORTEO [Suspect]
     Indication: OSTEOPOROSIS
     Dosage: UNK, UNK
     Dates: start: 20040101
  2. ESTRATEST [Concomitant]
  3. WELLBUTRIN [Concomitant]
     Indication: DEPRESSION
  4. FOSAMAX ONCE WEEKLY [Concomitant]
     Indication: OSTEOPOROSIS
     Dosage: UNK UNK, WEEKLY (1/W)
     Dates: start: 20000101
  5. CALCIUM [Concomitant]
  6. VITAMINS [Concomitant]
  7. EFFEXOR [Concomitant]
     Indication: DEPRESSION
  8. METHADONE HCL [Concomitant]
     Indication: PAIN

REACTIONS (4)
  - FALL [None]
  - FEAR [None]
  - FEELING ABNORMAL [None]
  - HIP FRACTURE [None]
